FAERS Safety Report 5789363-2 (Version None)
Quarter: 2008Q2

REPORT INFORMATION
  Report Type: 
  Country: None (occurrence: None)
  Receive Date: 20080625
  Receipt Date: 20080625
  Transmission Date: 20081010
  Serious: No
  Sender: FDA-Public Use
  Company Number: None

PATIENT
  Age: 24 Year
  Sex: Male

DRUGS (3)
  1. VANCOMYCIN [Suspect]
     Indication: ENTEROCOCCAL INFECTION
     Dosage: INTRAVENOUS; 1.0 GRAM
     Route: 042
     Dates: start: 20080421, end: 20080423
  2. MERREM [Suspect]
     Indication: OSTEOMYELITIS BACTERIAL
     Dosage: INTRAVENOUS; 1.0 GRAM
     Route: 042
     Dates: start: 20080421, end: 20080422
  3. ALUMINUM HYDROXIDE [Concomitant]

REACTIONS (4)
  - BLOOD CREATININE INCREASED [None]
  - NEPHRITIS INTERSTITIAL [None]
  - POTENTIATING DRUG INTERACTION [None]
  - RENAL TUBULAR NECROSIS [None]
